FAERS Safety Report 8390278 (Version 2)
Quarter: 2015Q4

REPORT INFORMATION
  Report Type: Spontaneous
  Country: BR (occurrence: BR)
  Receive Date: 20120203
  Receipt Date: 20151023
  Transmission Date: 20160305
  Serious: Yes (Other)
  Sender: FDA-Public Use
  Company Number: BR-BAYER-2012-010657

PATIENT
  Age: 28 Year
  Sex: Female
  Weight: 72 kg

DRUGS (5)
  1. TECTA [Concomitant]
     Active Substance: PANTOPRAZOLE MAGNESIUM
     Indication: GASTRITIS
  2. NAPROSYN [Suspect]
     Active Substance: NAPROXEN
     Indication: JOINT EFFUSION
  3. TECTA [Concomitant]
     Active Substance: PANTOPRAZOLE MAGNESIUM
     Indication: OESOPHAGITIS
     Dosage: UNK
     Route: 048
     Dates: start: 201201
  4. NAPROSYN [Suspect]
     Active Substance: NAPROXEN
     Indication: ARTHRALGIA
     Dosage: 50 MG, QD
     Route: 048
     Dates: start: 20120126, end: 20120130
  5. MESIGYNA [Concomitant]
     Indication: CONTRACEPTION
     Dosage: 1 DF, Q1MON
     Route: 030
     Dates: start: 201106

REACTIONS (8)
  - Gait disturbance [Not Recovered/Not Resolved]
  - Gastritis [Recovering/Resolving]
  - Haematochezia [Not Recovered/Not Resolved]
  - Retching [Not Recovered/Not Resolved]
  - Pain in extremity [Not Recovered/Not Resolved]
  - Abdominal pain upper [Recovering/Resolving]
  - Malaise [None]
  - Oesophagitis [Recovering/Resolving]

NARRATIVE: CASE EVENT DATE: 20120126
